FAERS Safety Report 8046742-0 (Version None)
Quarter: 2012Q1

REPORT INFORMATION
  Report Type: 
  Country: None (occurrence: None)
  Receive Date: 20120116
  Receipt Date: 20120104
  Transmission Date: 20120608
  Serious: Yes (Death, Other)
  Sender: FDA-Public Use
  Company Number: US-BIOGENIDEC-2012BI000474

PATIENT
  Sex: Female

DRUGS (5)
  1. IMMUNE GLOBULIN NOS [Concomitant]
     Route: 042
  2. AVONEX [Suspect]
     Indication: RELAPSING-REMITTING MULTIPLE SCLEROSIS
     Route: 030
  3. METHYLPREDNISOLONE [Concomitant]
     Route: 042
  4. METHOTREXATE [Concomitant]
  5. INTERFERON B-1 B [Concomitant]

REACTIONS (17)
  - DYSPHAGIA [None]
  - RESPIRATORY FAILURE [None]
  - HYPOTHYROIDISM [None]
  - STEM CELL TRANSPLANT [None]
  - CEREBRAL HAEMOSIDERIN DEPOSITION [None]
  - LUNG INFECTION [None]
  - DRUG DELIVERY DEVICE IMPLANTATION [None]
  - QUADRIPLEGIA [None]
  - PARAESTHESIA [None]
  - PNEUMONIA [None]
  - CEREBRAL MICROHAEMORRHAGE [None]
  - GAIT DISTURBANCE [None]
  - ASPIRATION [None]
  - MULTIPLE SCLEROSIS [None]
  - OPTIC NEURITIS [None]
  - DYSTONIA [None]
  - URINARY INCONTINENCE [None]
